FAERS Safety Report 6975656-X (Version None)
Quarter: 2010Q3

REPORT INFORMATION
  Report Type: 
  Country: None (occurrence: None)
  Receive Date: 20100910
  Receipt Date: 20090331
  Transmission Date: 20110219
  Serious: No
  Sender: FDA-Public Use
  Company Number: US-WYE-H08793809

PATIENT
  Sex: Female
  Weight: 98.52 kg

DRUGS (5)
  1. PRISTIQ [Suspect]
     Indication: ANXIETY
     Route: 048
     Dates: start: 20090329, end: 20090330
  2. OMEPRAZOLE [Concomitant]
  3. TRIAMTERENE [Concomitant]
  4. ATENOLOL [Concomitant]
  5. LOVASTATIN [Concomitant]

REACTIONS (6)
  - ANXIETY [None]
  - ASTHENIA [None]
  - DECREASED APPETITE [None]
  - NAUSEA [None]
  - PANIC ATTACK [None]
  - WEIGHT DECREASED [None]
